FAERS Safety Report 8493606 (Version 4)
Quarter: 2013Q4

REPORT INFORMATION
  Report Type: Spontaneous
  Country: BR (occurrence: BR)
  Receive Date: 20120404
  Receipt Date: 20131101
  Transmission Date: 20140711
  Serious: Yes (Hospitalization, Other)
  Sender: FDA-Public Use
  Company Number: BR-BAYER-2012-024537

PATIENT
  Age: 38 Year
  Sex: Female

DRUGS (4)
  1. MIRENA [Suspect]
     Indication: CONTRACEPTION
     Dosage: 20 ?G/D, CONT
     Route: 015
     Dates: start: 20080310, end: 20120905
  2. GARDENAL [Concomitant]
     Indication: CONVULSION
     Dosage: 2 DF, QD
     Route: 048
     Dates: start: 1997
  3. RIVOTRIL [Concomitant]
  4. MORPHINE [Concomitant]

REACTIONS (14)
  - Pregnancy with contraceptive device [Recovered/Resolved]
  - Haemorrhage in pregnancy [None]
  - Placenta accreta [None]
  - Tricuspid valve disease [None]
  - Menstruation irregular [None]
  - Cardiac murmur [None]
  - Chest pain [None]
  - Drug ineffective [None]
  - Abdominal pain [Recovered/Resolved]
  - Haemorrhage in pregnancy [Recovered/Resolved]
  - Procedural haemorrhage [None]
  - Haemorrhage in pregnancy [None]
  - Thrombosis [None]
  - Ulcer [None]
